FAERS Safety Report 8918787 (Version 1)
Quarter: 2012Q4

REPORT INFORMATION
  Report Type: 
  Country: US (occurrence: US)
  Receive Date: 20121120
  Receipt Date: 20121120
  Transmission Date: 20130627
  Serious: No
  Sender: FDA-Public Use
  Company Number: US-ASTRAZENECA-2012SE21049

PATIENT
  Age: 58 Year
  Sex: Female

DRUGS (5)
  1. NEXIUM [Suspect]
     Indication: GASTROOESOPHAGEAL REFLUX DISEASE
     Route: 048
     Dates: start: 20120323
  2. TOPROL XL [Suspect]
     Indication: HYPERTENSION
     Route: 048
     Dates: start: 20120313
  3. HYDROCHLOROTHIAZIDE [Concomitant]
     Indication: TOBACCO ABUSE
  4. HYDROCODONE-ACETAMINOPHEN [Concomitant]
     Indication: NECK PAIN
  5. FLEXERIL [Concomitant]
     Indication: NECK PAIN

REACTIONS (1)
  - Gastrooesophageal reflux disease [Unknown]
